FAERS Safety Report 6611659-2 (Version None)
Quarter: 2010Q1

REPORT INFORMATION
  Report Type: 
  Country: None (occurrence: None)
  Receive Date: 20100222
  Receipt Date: 20100208
  Transmission Date: 20100710
  Serious: Yes (Death, Hospitalization)
  Sender: FDA-Public Use
  Company Number: 2009AC000075

PATIENT
  Age: 66 Year
  Sex: Female

DRUGS (56)
  1. DIGOXIN [Suspect]
     Dosage: 0.125 MG; QD; PO
     Route: 048
  2. DIGOXIN [Suspect]
     Dosage: .125 MG; PO
     Route: 048
     Dates: start: 20060101, end: 20080101
  3. CALCIUM [Concomitant]
  4. FOSAMAX [Concomitant]
  5. ALBUTEROL [Concomitant]
  6. ASPIRIN [Concomitant]
  7. PRILOSEC [Concomitant]
  8. NITROGLYCERIN [Concomitant]
  9. VYTORIN [Concomitant]
  10. VITAMIN B-12 [Concomitant]
  11. ALDACTONE [Concomitant]
  12. COREG [Concomitant]
  13. MICRO-K [Concomitant]
  14. SYNTHROID [Concomitant]
  15. LASIX [Concomitant]
  16. LIBRAX [Concomitant]
  17. FISH OIL [Concomitant]
  18. METOPROLOL TARTRATE [Concomitant]
  19. SIMVASTATIN [Concomitant]
  20. BUMEX [Concomitant]
  21. FLORINEF [Concomitant]
  22. LOMOTIL [Concomitant]
  23. POTASSIUM [Concomitant]
  24. HYDROCHLOROTHIAZIDE [Concomitant]
  25. TOPROL-XL [Concomitant]
  26. PREMARIN [Concomitant]
  27. NEXIUM [Concomitant]
  28. ZOCOR [Concomitant]
  29. CALCIUM [Concomitant]
  30. METOPROLOL TARTRATE [Concomitant]
  31. PREDNISONE [Concomitant]
  32. LEVOTHYROXINE SODIUM [Concomitant]
  33. OMEPRAZOLE [Concomitant]
  34. ASPIRIN [Concomitant]
  35. FLUDROCORT [Concomitant]
  36. LEVOTHYROXINE SODIUM [Concomitant]
  37. FUROSEMIDE [Concomitant]
  38. MUCINEX [Concomitant]
  39. DECONEX [Concomitant]
  40. LEVAQUIN [Concomitant]
  41. TUSSIONEX [Concomitant]
  42. BUMETADINE [Concomitant]
  43. SPIRONOLACTONE [Concomitant]
  44. CARVEDILOL [Concomitant]
  45. NITROGLYCERIN [Concomitant]
  46. PLAVIX [Concomitant]
  47. SKELAXIN [Concomitant]
  48. AZITHROMYCIN [Concomitant]
  49. MIDODRINE HYDROCHLORIDE [Concomitant]
  50. KLOR-CON [Concomitant]
  51. SERTRALINE HCL [Concomitant]
  52. ETODOLAC [Concomitant]
  53. MELOXICAM [Concomitant]
  54. CEFDINIR [Concomitant]
  55. COREG [Concomitant]
  56. TOPROL-XL [Concomitant]

REACTIONS (25)
  - ABDOMINAL DISTENSION [None]
  - ABDOMINAL PAIN [None]
  - ANGINA PECTORIS [None]
  - ANXIETY [None]
  - BRADYCARDIA [None]
  - CARDIAC FAILURE CONGESTIVE [None]
  - CORONARY ARTERY DISEASE [None]
  - ECONOMIC PROBLEM [None]
  - EXTRASYSTOLES [None]
  - FALL [None]
  - HAEMATOMA [None]
  - HYPERTENSION [None]
  - HYPOTENSION [None]
  - INTERMITTENT CLAUDICATION [None]
  - LIMB INJURY [None]
  - LOSS OF CONSCIOUSNESS [None]
  - MULTIPLE INJURIES [None]
  - MUSCULOSKELETAL CHEST PAIN [None]
  - NAUSEA [None]
  - ORTHOSTATIC HYPOTENSION [None]
  - PAIN [None]
  - SINUSITIS [None]
  - SOCIAL AVOIDANT BEHAVIOUR [None]
  - SURGERY [None]
  - THERAPEUTIC AGENT TOXICITY [None]
